FAERS Safety Report 5912132-7 (Version None)
Quarter: 2008Q4

REPORT INFORMATION
  Report Type: 
  Country: None (occurrence: None)
  Receive Date: 20081003
  Receipt Date: 20081003
  Transmission Date: 20090506
  Serious: Yes (Hospitalization)
  Sender: FDA-Public Use
  Company Number: None

PATIENT
  Age: 86 Year
  Sex: Male
  Weight: 82.1 kg

DRUGS (1)
  1. TRIMETHOPRIM-SULFAMETHOXAZOLE [Suspect]
     Indication: URINARY TRACT INFECTION
     Dosage: 1 TAB BID PO
     Route: 048
     Dates: start: 20080904, end: 20080911

REACTIONS (6)
  - ACUTE PRERENAL FAILURE [None]
  - CONFUSIONAL STATE [None]
  - FALL [None]
  - HEPATIC NECROSIS [None]
  - HEPATOTOXICITY [None]
  - UROSEPSIS [None]
